FAERS Safety Report 15734452 (Version 1)
Quarter: 2018Q4

REPORT INFORMATION
  Report Type: Spontaneous
  Country: US (occurrence: US)
  Receive Date: 20181203
  Receipt Date: 20181203
  Transmission Date: 20190205
  Serious: No
  Sender: FDA-Public Use
  Company Number: None

PATIENT
  Age: 70 Year
  Sex: Female

DRUGS (1)
  1. ENOXAPARIN INJ 100MG/ML [Suspect]
     Active Substance: ENOXAPARIN SODIUM
     Dates: start: 20181101, end: 20181128

REACTIONS (3)
  - Constipation [None]
  - Rectal haemorrhage [None]
  - Pruritus [None]

NARRATIVE: CASE EVENT DATE: 20181130
